FAERS Safety Report 23223870 (Version 1)
Quarter: 2023Q4

REPORT INFORMATION
  Report Type: Spontaneous
  Country: GB (occurrence: GB)
  Receive Date: 20231124
  Receipt Date: 20231124
  Transmission Date: 20240110
  Serious: Yes (Disabling)
  Sender: FDA-Public Use
  Company Number: None

PATIENT
  Age: 67 Year
  Sex: Female
  Weight: 92 kg

DRUGS (3)
  1. LEVOTHYROXINE [Suspect]
     Active Substance: LEVOTHYROXINE
     Indication: Adverse drug reaction
     Dosage: 100 MICROGRAM DAILY; 100MCG, 50MCG, 25MCGS ONCE A DAY MORNINGS; ;
     Route: 065
  2. LEVOTHYROXINE [Suspect]
     Active Substance: LEVOTHYROXINE
     Indication: Thyroid disorder
     Dosage: 50 MICROGRAM DAILY; 100MCG, 50MCG, 25MCGS ONCE A DAY MORNINGS; ;
     Route: 065
  3. LEVOTHYROXINE [Suspect]
     Active Substance: LEVOTHYROXINE
     Dosage: 25 MICROGRAM DAILY; 100MCG, 50MCG, 25MCGS ONCE A DAY MORNINGS; ;
     Route: 065

REACTIONS (1)
  - Lethargy [Recovered/Resolved]
